FAERS Safety Report 8775579 (Version 1)
Quarter: 2012Q4

REPORT INFORMATION
  Report Type: 
  Country: US (occurrence: US)
  Receive Date: 20120909
  Receipt Date: 20120909
  Transmission Date: 20130627
  Serious: Yes (Hospitalization, Other)
  Sender: FDA-Public Use
  Company Number: CHPA2012US019202

PATIENT
  Age: 66 Year
  Sex: Male

DRUGS (2)
  1. EXCEDRIN EXTRA STRENGTH [Suspect]
     Indication: HEADACHE
     Dosage: 2 DF, PRN
     Route: 048
  2. ACETAMINOPHEN\ASPIRIN\CAFFEINE [Suspect]
     Dosage: Unk, Unk

REACTIONS (2)
  - Myocardial infarction [Recovered/Resolved]
  - Thrombosis [Recovered/Resolved]
